FAERS Safety Report 4303089-3 (Version None)
Quarter: 2004Q1

REPORT INFORMATION
  Report Type: 
  Country: None (occurrence: None)
  Receive Date: 20040223
  Receipt Date: 20040213
  Transmission Date: 20041129
  Serious: Yes (Death)
  Sender: FDA-Public Use
  Company Number: USA-2003-0007232

PATIENT
  Age: 23 Year
  Sex: Male
  Weight: 90.7 kg

DRUGS (4)
  1. OXYCODONE HCL [Suspect]
  2. ETHANOL (ETHANOL) [Suspect]
  3. LIDOCAINE [Suspect]
  4. CAFFEINE (CAFFEINE) [Suspect]

REACTIONS (6)
  - ACCIDENT [None]
  - ALCOHOL USE [None]
  - DROWNING [None]
  - PULMONARY CONGESTION [None]
  - PULMONARY OEDEMA [None]
  - ROAD TRAFFIC ACCIDENT [None]
